FAERS Safety Report 23374697 (Version 1)
Quarter: 2024Q1

REPORT INFORMATION
  Report Type: Spontaneous
  Country: JP (occurrence: JP)
  Receive Date: 20240105
  Receipt Date: 20240105
  Transmission Date: 20240410
  Serious: Yes (Hospitalization, Other)
  Sender: FDA-Public Use
  Company Number: JP-Accord-400102

PATIENT
  Age: 71 Year
  Sex: Male

DRUGS (3)
  1. PEMETREXED [Suspect]
     Active Substance: PEMETREXED
     Indication: Metastases to lung
     Dosage: 12 CYCLE IN NOV 2022
     Dates: start: 202211
  2. PEMBROLIZUMAB [Suspect]
     Active Substance: PEMBROLIZUMAB
     Indication: Metastases to lung
     Dosage: RECEIVED A 12TH CYCLE OF IN NOV-2022
     Dates: start: 202211
  3. CARBOPLATIN [Concomitant]
     Active Substance: CARBOPLATIN
     Indication: Metastases to lung
     Dates: start: 202112

REACTIONS (1)
  - Escherichia pyelonephritis [Unknown]

NARRATIVE: CASE EVENT DATE: 20221201
